FAERS Safety Report 10182595 (Version 2)
Quarter: 2014Q2

REPORT INFORMATION
  Report Type: Spontaneous
  Country: US (occurrence: None)
  Receive Date: 20140416
  Receipt Date: 20140604
  Transmission Date: 20141212
  Serious: Yes (Hospitalization)
  Sender: FDA-Public Use
  Company Number: 163-POMAL-14012900

PATIENT
  Age: 50 Year
  Sex: Female

DRUGS (21)
  1. POMALYST [Suspect]
     Indication: PLASMA CELL MYELOMA
     Dosage: 3 MG, 21 IN 21 D
     Route: 048
     Dates: start: 20130319, end: 2013
  2. DEXAMETHASONE(DEXAMETHASONE) [Concomitant]
  3. DARATUMUMAB(DARATUMUMAB) [Concomitant]
  4. CARFILZOMIB(CARFILZOMIB) [Concomitant]
  5. ACYCLOVIR(ACICLOVIR) [Concomitant]
  6. AMLODIPINE (AMLODIPINE) [Concomitant]
  7. FLUCONAZOLE(FLUCONAZOLE) [Concomitant]
  8. FUROSEMIDE(FUROSEMIDE) [Concomitant]
  9. VORINOSTAT(VORINOSTAT) [Concomitant]
  10. GABAPENTIN(GABAPENTIN) [Concomitant]
  11. LEVOFLOXACIN(LEVOFLOXACIN) [Concomitant]
  12. LORAZEPAM(LORAZEPAM) [Concomitant]
  13. MORPHINE(MORPHINE) [Concomitant]
  14. ONDANSETRON(ONDANSETRON) [Concomitant]
  15. PANTOPRAZOLE(PANTOPRAZOLE) [Concomitant]
  16. PROCHLORPERAZINE (PROCHLORPERAZINE) [Concomitant]
  17. THALOMID(THALIDOMIDE) [Concomitant]
  18. ZOLPIDEM(ZOLPIDEM) [Concomitant]
  19. NEUPOGEN(FILGRASTIM) [Concomitant]
  20. ZOMETA(ZOLEDRONIC ACID) [Concomitant]
  21. OXYCODONE(OXYCODONE) [Concomitant]

REACTIONS (1)
  - Plasma cell myeloma [None]
